FAERS Safety Report 11649690 (Version 3)
Quarter: 2016Q1

REPORT INFORMATION
  Report Type: Spontaneous
  Country: US (occurrence: US)
  Receive Date: 20151021
  Receipt Date: 20160128
  Transmission Date: 20160525
  Serious: No
  Sender: FDA-Public Use
  Company Number: US-PFIZER INC-2015350140

PATIENT
  Age: 60 Year
  Sex: Male
  Weight: 75 kg

DRUGS (5)
  1. TAMSULOSIN [Concomitant]
     Active Substance: TAMSULOSIN
     Indication: PROSTATOMEGALY
     Dosage: 0.4 MG, DAILY
     Route: 048
     Dates: start: 2005
  2. VICODIN [Concomitant]
     Active Substance: ACETAMINOPHEN\HYDROCODONE BITARTRATE
     Indication: PAIN
     Dosage: 10 MG, EVERY 4 HOURS
     Dates: start: 2006
  3. LISINOPRIL. [Concomitant]
     Active Substance: LISINOPRIL
     Indication: BLOOD PRESSURE INCREASED
     Dosage: 10 MG, DAILY
     Route: 048
     Dates: start: 2004
  4. DUO NEBULIZER [Concomitant]
     Indication: LUNG DISORDER
     Dosage: ALBUTEROL 3MG MIXED WITH IPRATROPIUM BROMIDE 0.5MG, THREE TIMES A DAY
     Dates: start: 2004
  5. VIAGRA [Suspect]
     Active Substance: SILDENAFIL CITRATE
     Indication: ERECTILE DYSFUNCTION
     Dosage: 100 MG, AS NEEDED BEFORE SEX
     Route: 048
     Dates: start: 2006

REACTIONS (1)
  - Muscle spasms [Recovering/Resolving]
